FAERS Safety Report 7392783-6 (Version None)
Quarter: 2011Q2

REPORT INFORMATION
  Report Type: 
  Country: None (occurrence: None)
  Receive Date: 20110404
  Receipt Date: 20110330
  Transmission Date: 20111010
  Serious: Yes (Death)
  Sender: FDA-Public Use
  Company Number: PHHY2010CA87004

PATIENT
  Sex: Female

DRUGS (1)
  1. ACLASTA [Suspect]
     Indication: OSTEOPOROSIS
     Dosage: 5MG/100ML
     Dates: start: 20101214

REACTIONS (6)
  - DEATH [None]
  - HEADACHE [None]
  - PYREXIA [None]
  - ABDOMINAL DISCOMFORT [None]
  - CHILLS [None]
  - COUGH [None]
